FAERS Safety Report 5242252-4 (Version None)
Quarter: 2007Q1

REPORT INFORMATION
  Report Type: 
  Country: None (occurrence: None)
  Receive Date: 20070216
  Receipt Date: 20070216
  Transmission Date: 20070707
  Serious: Yes (Other)
  Sender: FDA-Public Use
  Company Number: None

PATIENT
  Sex: Female
  Weight: 91.9 kg

DRUGS (6)
  1. DOXORUBICIN HCL [Suspect]
     Indication: CHEMOTHERAPY
     Dosage: 60 MG/M2  Q 2 WEEKS 4 CYCLES   IV
     Route: 042
     Dates: start: 20060921, end: 20061102
  2. CYCLOPHOSPHAMIDE [Suspect]
     Indication: CHEMOTHERAPY
     Dosage: 600 MG/M2  Q 2 WEEKS 4 CYCLES  IV
     Route: 042
     Dates: start: 20060921, end: 20061102
  3. ABRAXANE [Suspect]
     Indication: CHEMOTHERAPY
     Dosage: 260 MG/M2  Q 2 WEEKS 4 CYCLES  IV
     Route: 042
     Dates: start: 20061116, end: 20061228
  4. ATIVAN [Concomitant]
  5. COMPAZINE AND DECADRON [Concomitant]
  6. NYSTATIN [Concomitant]

REACTIONS (2)
  - NEUTROPENIA [None]
  - WHITE BLOOD CELL COUNT DECREASED [None]
